FAERS Safety Report 7510344-2 (Version None)
Quarter: 2011Q2

REPORT INFORMATION
  Report Type: 
  Country: None (occurrence: None)
  Receive Date: 20110527
  Receipt Date: 20110525
  Transmission Date: 20111010
  Serious: Yes (Hospitalization)
  Sender: FDA-Public Use
  Company Number: BR-ABBOTT-10P-020-0694201-00

PATIENT
  Sex: Female
  Weight: 40 kg

DRUGS (6)
  1. ASSERT [Concomitant]
     Indication: ANTIDEPRESSANT THERAPY
     Route: 048
  2. MESALAMINE [Concomitant]
     Indication: GASTROINTESTINAL DISORDER
     Route: 048
     Dates: start: 20040101
  3. PANTOPRAZOLE [Concomitant]
     Indication: GASTRIC DISORDER
     Route: 048
     Dates: start: 20040101
  4. PANTOPRAZOLE [Concomitant]
     Indication: PROPHYLAXIS
  5. HUMIRA [Suspect]
     Indication: CROHN'S DISEASE
     Dosage: INDUCTION DOSE: 160MG/ 80MG/ 15 DAYS
     Route: 058
     Dates: start: 20090901, end: 20101215
  6. MESALAMINE [Concomitant]
     Indication: PROPHYLAXIS

REACTIONS (4)
  - PYREXIA [None]
  - DIARRHOEA [None]
  - NASOPHARYNGITIS [None]
  - ANAEMIA [None]
